FAERS Safety Report 13354066 (Version 1)
Quarter: 2017Q1

REPORT INFORMATION
  Report Type: Report from Study
  Country: PE (occurrence: PE)
  Receive Date: 20170321
  Receipt Date: 20170321
  Transmission Date: 20170429
  Serious: Yes (Death)
  Sender: FDA-Public Use
  Company Number: PE-TEVA-748913ISR

PATIENT
  Age: 71 Year
  Sex: Male

DRUGS (1)
  1. GRIFOPARKIN 250MG+ 25MG [Suspect]
     Active Substance: CARBIDOPA\LEVODOPA
     Route: 065
     Dates: start: 2016

REACTIONS (2)
  - Pneumonia [Fatal]
  - Blood pressure increased [Fatal]

NARRATIVE: CASE EVENT DATE: 20161207
